FAERS Safety Report 13597439 (Version 1)
Quarter: 2017Q2

REPORT INFORMATION
  Report Type: Report from Study
  Country: DE (occurrence: DE)
  Receive Date: 20170531
  Receipt Date: 20170531
  Transmission Date: 20170830
  Serious: Yes (Life-Threatening, Hospitalization, Other)
  Sender: FDA-Public Use
  Company Number: DE-TEVA-750916GER

PATIENT
  Age: 50 Year
  Sex: Male
  Weight: 90 kg

DRUGS (3)
  1. BACLOFEN 10 [Concomitant]
     Active Substance: BACLOFEN
     Dosage: 15 MILLIGRAM DAILY; 1/2 - 0 - 1
  2. GABAPENTIN 400 [Concomitant]
     Dosage: 2 X 1/2
  3. COPAXONE [Suspect]
     Active Substance: GLATIRAMER ACETATE
     Indication: MULTIPLE SCLEROSIS
     Dates: start: 20160405, end: 20170115

REACTIONS (8)
  - Renal failure [Recovered/Resolved]
  - Myalgia [Not Recovered/Not Resolved]
  - Hepatic failure [Recovered/Resolved]
  - Dyspnoea [Recovered/Resolved]
  - Electrocardiogram abnormal [Recovered/Resolved]
  - Visual impairment [Not Recovered/Not Resolved]
  - Cardiac arrest [Recovered/Resolved]
  - Cardiogenic shock [Not Recovered/Not Resolved]

NARRATIVE: CASE EVENT DATE: 201701
